FAERS Safety Report 12138903 (Version 2)
Quarter: 2016Q2

REPORT INFORMATION
  Report Type: Spontaneous
  Country: NL (occurrence: NL)
  Receive Date: 20160302
  Receipt Date: 20160405
  Transmission Date: 20160815
  Serious: Yes (Disabling)
  Sender: FDA-Public Use
  Company Number: NL-TEVA-638991ACC

PATIENT
  Age: 79 Year
  Sex: Female
  Weight: 48 kg

DRUGS (1)
  1. AMOXICILLINE CAPSULE 250MG [Suspect]
     Active Substance: AMOXICILLIN
     Indication: ANTIBIOTIC PROPHYLAXIS
     Dosage: 1 DOSAGE FORMS DAILY; ONCE DAILY ONE PIECE, EXTRA INFO: DURING 7 DAYS
     Route: 048
     Dates: start: 20130930

REACTIONS (6)
  - Inflammation [Recovering/Resolving]
  - Candida infection [Recovering/Resolving]
  - Infection susceptibility increased [Recovering/Resolving]
  - Diarrhoea [Recovering/Resolving]
  - Renal impairment [Recovering/Resolving]
  - Fatigue [Recovering/Resolving]

NARRATIVE: CASE EVENT DATE: 20130930
